FAERS Safety Report 9524770 (Version 1)
Quarter: 2013Q3

REPORT INFORMATION
  Report Type: Report from Study
  Country: BR (occurrence: BR)
  Receive Date: 20130916
  Receipt Date: 20130916
  Transmission Date: 20140515
  Serious: Yes (Other)
  Sender: FDA-Public Use
  Company Number: PHHY2013BR101906

PATIENT
  Sex: Female

DRUGS (1)
  1. EXFORGE HCT [Suspect]
     Indication: HYPERTENSION
     Dosage: 1 DF,(160 VALSA/5 MG AMLO/12.5 MG HCT ) IN THE MORNING

REACTIONS (7)
  - Intracranial aneurysm [Recovered/Resolved]
  - Bronchitis [Recovered/Resolved]
  - Secretion discharge [Recovered/Resolved]
  - Fatigue [Recovered/Resolved]
  - Blood cholesterol abnormal [Recovered/Resolved]
  - Blood disorder [Recovered/Resolved]
  - Influenza [Recovered/Resolved]
